FAERS Safety Report 24849112 (Version 1)
Quarter: 2025Q1

REPORT INFORMATION
  Report Type: Spontaneous
  Country: CA (occurrence: CA)
  Receive Date: 20250116
  Receipt Date: 20250116
  Transmission Date: 20250409
  Serious: Yes (Hospitalization, Other)
  Sender: HIKMA
  Company Number: CA-HIKMA PHARMACEUTICALS USA INC.-CA-H14001-25-00048

PATIENT

DRUGS (2)
  1. CEFAZOLIN [Suspect]
     Active Substance: CEFAZOLIN
     Indication: Intervertebral discitis
     Dosage: 700 MILLIGRAM, Q8H
     Route: 042
  2. HEPARIN SODIUM [Concomitant]
     Active Substance: HEPARIN SODIUM
     Indication: Product used for unknown indication
     Route: 065

REACTIONS (13)
  - Abdominal pain [Recovered/Resolved]
  - Angioedema [Recovered/Resolved]
  - Crying [Recovered/Resolved]
  - Erythema [Recovered/Resolved]
  - Gait disturbance [Recovered/Resolved]
  - Oedema peripheral [Recovered/Resolved]
  - Pain in extremity [Recovered/Resolved]
  - Papule [Recovered/Resolved]
  - Pruritus [Recovered/Resolved]
  - Rash [Recovered/Resolved]
  - Serum sickness [Recovered/Resolved]
  - Skin plaque [Recovered/Resolved]
  - Urticaria [Recovered/Resolved]
